FAERS Safety Report 22609899 (Version 1)
Quarter: 2023Q2

REPORT INFORMATION
  Report Type: Spontaneous
  Country: US (occurrence: US)
  Receive Date: 20230616
  Receipt Date: 20230616
  Transmission Date: 20230722
  Serious: Yes (Life-Threatening, Hospitalization, Other)
  Sender: FDA-Public Use
  Company Number: US-PFIZER INC-PV202300105371

PATIENT
  Age: 55 Year
  Sex: Male
  Weight: 84 kg

DRUGS (2)
  1. EPINEPHRINE [Suspect]
     Active Substance: EPINEPHRINE
     Indication: Supraventricular tachycardia
     Dosage: 1 MG (MULTIPLE)
  2. PHENYLEPHRINE HCL [Suspect]
     Active Substance: PHENYLEPHRINE HYDROCHLORIDE
     Dosage: UNK (0.2-0.8 MG)

REACTIONS (1)
  - Drug ineffective [Unknown]
